FAERS Safety Report 25447678 (Version 1)
Quarter: 2025Q2

REPORT INFORMATION
  Report Type: Spontaneous
  Country: US (occurrence: US)
  Receive Date: 20250617
  Receipt Date: 20250617
  Transmission Date: 20250716
  Serious: Yes (Other)
  Sender: OTSUKA
  Company Number: US-MMM-Otsuka-20CYT9MB

PATIENT
  Age: 65 Year
  Sex: Female

DRUGS (1)
  1. ABILIFY [Suspect]
     Active Substance: ARIPIPRAZOLE
     Indication: Psychotic disorder
     Route: 065
     Dates: start: 2004

REACTIONS (12)
  - Schizoaffective disorder [Unknown]
  - Suicide attempt [Unknown]
  - Diabetes mellitus [Unknown]
  - Stress [Not Recovered/Not Resolved]
  - Fear [Not Recovered/Not Resolved]
  - Feeling abnormal [Unknown]
  - Delusion [Unknown]
  - Abdominal pain upper [Not Recovered/Not Resolved]
  - Aggression [Unknown]
  - Agitation [Unknown]
  - Anxiety [Unknown]
  - Product use in unapproved indication [Unknown]

NARRATIVE: CASE EVENT DATE: 20240101
